FAERS Safety Report 6034005-4 (Version None)
Quarter: 2009Q1

REPORT INFORMATION
  Report Type: 
  Country: None (occurrence: None)
  Receive Date: 20090112
  Receipt Date: 20090105
  Transmission Date: 20090719
  Serious: Yes (Hospitalization)
  Sender: FDA-Public Use
  Company Number: US-JNJFOC-20090100731

PATIENT
  Age: 46 Year
  Sex: Female

DRUGS (3)
  1. REMICADE [Suspect]
     Route: 042
  2. REMICADE [Suspect]
     Indication: SARCOIDOSIS
     Route: 042
  3. BENADRYL [Concomitant]
     Indication: PREMEDICATION

REACTIONS (3)
  - ADVERSE EVENT [None]
  - MUSCULAR WEAKNESS [None]
  - PARALYSIS [None]
